FAERS Safety Report 10273330 (Version 1)
Quarter: 2014Q3

REPORT INFORMATION
  Report Type: Spontaneous
  Country: US (occurrence: US)
  Receive Date: 20140702
  Receipt Date: 20140702
  Transmission Date: 20150326
  Serious: No
  Sender: FDA-Public Use
  Company Number: US-009507513-1406USA011053

PATIENT
  Age: 19 Year
  Sex: Female
  Weight: 109.57 kg

DRUGS (1)
  1. NEXPLANON [Suspect]
     Active Substance: ETONOGESTREL
     Indication: MENSTRUATION IRREGULAR
     Dosage: 3-5 YEAR IMPLANT
     Route: 059
     Dates: start: 20130620

REACTIONS (3)
  - Implant site pain [Unknown]
  - Drug administration error [Unknown]
  - Diarrhoea [Unknown]

NARRATIVE: CASE EVENT DATE: 20130620
